FAERS Safety Report 6814612-9 (Version None)
Quarter: 2010Q3

REPORT INFORMATION
  Report Type: 
  Country: None (occurrence: None)
  Receive Date: 20100702
  Receipt Date: 20100624
  Transmission Date: 20110219
  Serious: Yes (Life-Threatening)
  Sender: FDA-Public Use
  Company Number: GB-PFIZER INC-2010078717

PATIENT
  Age: 3 Year
  Sex: Male
  Weight: 15 kg

DRUGS (7)
  1. PHENYTOIN [Suspect]
     Indication: STATUS EPILEPTICUS
     Dosage: 270 MG, UNK
     Route: 042
     Dates: start: 20100612, end: 20100612
  2. CEFTRIAXONE [Concomitant]
     Dosage: UNK
  3. DIAZEPAM [Concomitant]
     Dosage: UNK
  4. EPILIM [Concomitant]
     Dosage: UNK
  5. LORAZEPAM [Concomitant]
     Dosage: UNK
  6. PARACETAMOL [Concomitant]
     Dosage: UNK
  7. PARALDEHYDE [Concomitant]
     Dosage: UNK

REACTIONS (1)
  - ANAPHYLACTIC REACTION [None]
